FAERS Safety Report 8999853 (Version 1)
Quarter: 2013Q1

REPORT INFORMATION
  Report Type: Spontaneous
  Country: IT (occurrence: IT)
  Receive Date: 20130102
  Receipt Date: 20130102
  Transmission Date: 20140127
  Serious: Yes (Hospitalization)
  Sender: FDA-Public Use
  Company Number: IT-SANOFI-AVENTIS-2012SA094516

PATIENT
  Age: 66 Year
  Sex: Female

DRUGS (2)
  1. GARDENALE [Suspect]
     Indication: SUICIDE ATTEMPT
     Dosage: 60 POSOLOGICAL UNITS
     Route: 048
     Dates: start: 20120604, end: 20120604
  2. STILNOX [Suspect]
     Indication: SUICIDE ATTEMPT
     Dosage: 15 POSOLOGICAL UNITS
     Route: 048
     Dates: start: 20120604, end: 20120604

REACTIONS (1)
  - Coma [Recovering/Resolving]
